FAERS Safety Report 6180560-3 (Version None)
Quarter: 2009Q2

REPORT INFORMATION
  Report Type: 
  Country: None (occurrence: None)
  Receive Date: 20090506
  Receipt Date: 20090424
  Transmission Date: 20091009
  Serious: Yes (Other)
  Sender: FDA-Public Use
  Company Number: US-PFIZER INC-2006019496

PATIENT
  Sex: Female

DRUGS (3)
  1. PROVERA [Suspect]
     Indication: HORMONE REPLACEMENT THERAPY
     Dosage: 10 MG, 1X/DAY
     Route: 048
  2. PREMARIN [Suspect]
     Indication: HORMONE REPLACEMENT THERAPY
     Dosage: 0.625 MG, 1X/DAY
     Route: 065
  3. PREMPRO [Suspect]
     Indication: HORMONE REPLACEMENT THERAPY
     Route: 065

REACTIONS (1)
  - BREAST CANCER [None]
